FAERS Safety Report 15630527 (Version 6)
Quarter: 2019Q2

REPORT INFORMATION
  Report Type: Spontaneous
  Country: PT (occurrence: PT)
  Receive Date: 20181119
  Receipt Date: 20190412
  Transmission Date: 20190711
  Serious: Yes (Death, Hospitalization, Other)
  Sender: FDA-Public Use
  Company Number: PT-AUROBINDO-AUR-APL-2018-054194

PATIENT

DRUGS (34)
  1. GABAPENTIN. [Suspect]
     Active Substance: GABAPENTIN
     Indication: CENTRAL PAIN SYNDROME
     Dosage: 1600 MILLIGRAM, ONCE A DAY
     Route: 065
     Dates: start: 200202
  2. GABAPENTIN. [Suspect]
     Active Substance: GABAPENTIN
     Dosage: 800 MILLIGRAM, ONCE A DAY
     Route: 065
     Dates: start: 200709
  3. PARACETAMOL [Suspect]
     Active Substance: ACETAMINOPHEN
     Indication: CENTRAL PAIN SYNDROME
     Dosage: 3 GRAM, ONCE A DAY
     Route: 065
  4. AMITRIPTYLINE [Suspect]
     Active Substance: AMITRIPTYLINE
     Indication: CENTRAL PAIN SYNDROME
     Dosage: 50 MILLIGRAM, ONCE A DAY
     Route: 065
     Dates: start: 200202
  5. RITONAVIR. [Suspect]
     Active Substance: RITONAVIR
     Indication: ACQUIRED IMMUNODEFICIENCY SYNDROME
     Dosage: UNK
     Route: 065
  6. GABAPENTIN. [Suspect]
     Active Substance: GABAPENTIN
     Dosage: 2400 MILLIGRAM, ONCE A DAY
     Route: 065
     Dates: start: 200402
  7. LAMIVUDINE. [Suspect]
     Active Substance: LAMIVUDINE
     Indication: HIV INFECTION
     Dosage: UNK
     Route: 065
     Dates: start: 200202
  8. FOLINIC ACID [Concomitant]
     Active Substance: LEUCOVORIN
     Indication: ACQUIRED IMMUNODEFICIENCY SYNDROME
     Dosage: UNK
     Route: 065
  9. GABAPENTIN. [Suspect]
     Active Substance: GABAPENTIN
     Dosage: 2400 MILLIGRAM, ONCE A DAY
     Route: 065
     Dates: start: 200301
  10. GABAPENTIN. [Suspect]
     Active Substance: GABAPENTIN
     Dosage: 400 MILLIGRAM, 3 TIMES A DAY
     Route: 065
     Dates: start: 200202
  11. TRAMADOL. [Suspect]
     Active Substance: TRAMADOL
     Indication: CENTRAL PAIN SYNDROME
     Dosage: 100 MILLIGRAM, TWO TIMES A DAY
     Route: 065
     Dates: start: 200202
  12. LOPINAVIR;RITONAVIR [Suspect]
     Active Substance: LOPINAVIR\RITONAVIR
     Indication: HIV INFECTION
     Dosage: UNK UNK, UNK
     Route: 016
     Dates: start: 200202
  13. LOPINAVIR [Suspect]
     Active Substance: LOPINAVIR
     Indication: ACQUIRED IMMUNODEFICIENCY SYNDROME
     Dosage: UNK
     Route: 005
  14. BUPRENORPHINE. [Concomitant]
     Active Substance: BUPRENORPHINE
     Indication: CENTRAL PAIN SYNDROME
     Dosage: TRANSDERMAL PATCH WITH TITRATION OF UP TO 35 ?G PER HR
     Route: 062
     Dates: start: 200709
  15. VENLAFAXINE [Concomitant]
     Active Substance: VENLAFAXINE HYDROCHLORIDE
     Indication: CENTRAL PAIN SYNDROME
     Dosage: 75 MILLIGRAM, ONCE A DAY
     Route: 062
     Dates: start: 200709
  16. CLONAZEPAM. [Concomitant]
     Active Substance: CLONAZEPAM
     Indication: CENTRAL PAIN SYNDROME
     Dosage: 0.25 MILLIGRAM/SQ. METER, ONCE A DAY
     Route: 065
     Dates: start: 201201
  17. PARACETAMOL [Suspect]
     Active Substance: ACETAMINOPHEN
     Dosage: 1 GRAM, 3 TIMES A DAY
     Route: 065
  18. TRAMADOL. [Suspect]
     Active Substance: TRAMADOL
     Dosage: 200 MILLIGRAM, ONCE A DAY
     Route: 065
  19. LAMIVUDINE. [Suspect]
     Active Substance: LAMIVUDINE
     Indication: ACQUIRED IMMUNODEFICIENCY SYNDROME
  20. MIRTAZAPINE. [Concomitant]
     Active Substance: MIRTAZAPINE
     Indication: CENTRAL PAIN SYNDROME
     Dosage: 15 MILLIGRAM, ONCE A DAY
     Route: 065
     Dates: start: 201201
  21. TRAMADOL. [Suspect]
     Active Substance: TRAMADOL
     Dosage: 200 MILLIGRAM, TWO TIMES A DAY
     Route: 065
     Dates: start: 200301
  22. STAVUDINE. [Suspect]
     Active Substance: STAVUDINE
     Indication: HIV INFECTION
  23. GABAPENTIN. [Suspect]
     Active Substance: GABAPENTIN
     Dosage: 300 MILLIGRAM, TWO TIMES A DAY
     Route: 065
     Dates: start: 201201
  24. TRAMADOL. [Suspect]
     Active Substance: TRAMADOL
     Dosage: 200 MILLIGRAM, TWO TIMES A DAY
     Route: 065
     Dates: start: 201201
  25. STAVUDINE. [Suspect]
     Active Substance: STAVUDINE
     Indication: ACQUIRED IMMUNODEFICIENCY SYNDROME
     Dosage: UNK
     Route: 016
     Dates: start: 200202
  26. SULFADIAZINE. [Concomitant]
     Active Substance: SULFADIAZINE
     Indication: ACQUIRED IMMUNODEFICIENCY SYNDROME
     Dosage: UNK
     Route: 065
  27. GABAPENTIN. [Suspect]
     Active Substance: GABAPENTIN
     Dosage: 600 MILLIGRAM, TWO TIMES A DAY
     Route: 065
     Dates: start: 201201
  28. GABAPENTIN. [Suspect]
     Active Substance: GABAPENTIN
     Dosage: 1200 MILLIGRAM, ONCE A DAY
     Route: 065
  29. TRAMADOL. [Suspect]
     Active Substance: TRAMADOL
     Dosage: 200 MILLIGRAM, UNK
     Route: 065
     Dates: start: 201201
  30. BACLOFEN. [Suspect]
     Active Substance: BACLOFEN
     Dosage: 20 MILLIGRAM, ONCE A DAY
     Route: 065
  31. TENOFOVIR [Concomitant]
     Active Substance: TENOFOVIR
     Indication: ACQUIRED IMMUNODEFICIENCY SYNDROME
     Dosage: UNK
     Route: 065
  32. PYRIMETHAMINE [Concomitant]
     Active Substance: PYRIMETHAMINE
     Indication: PRODUCT USED FOR UNKNOWN INDICATION
     Dosage: UNK
     Route: 065
  33. BACLOFEN. [Suspect]
     Active Substance: BACLOFEN
     Indication: CENTRAL PAIN SYNDROME
     Dosage: 10 MILLIGRAM, ONCE A DAY
     Route: 065
     Dates: start: 200703
  34. AMITRIPTYLINE [Suspect]
     Active Substance: AMITRIPTYLINE
     Dosage: 25 MILLIGRAM, ONCE A DAY
     Route: 065

REACTIONS (34)
  - Hepatic failure [Fatal]
  - Renal failure [Recovering/Resolving]
  - Hypoaesthesia [Unknown]
  - Condition aggravated [Unknown]
  - Electric shock [Unknown]
  - Drug intolerance [Unknown]
  - Infection reactivation [Unknown]
  - Gastrointestinal haemorrhage [Fatal]
  - Liver disorder [Fatal]
  - Nephropathy [Unknown]
  - CD4 lymphocytes decreased [Unknown]
  - Somnolence [Unknown]
  - Renal impairment [Unknown]
  - Polyneuropathy [Unknown]
  - Dysaesthesia [Unknown]
  - Paraesthesia [Unknown]
  - Dizziness [Unknown]
  - Neuralgia [Unknown]
  - Discomfort [Unknown]
  - Nasopharyngitis [Unknown]
  - Muscle spasticity [Unknown]
  - Pancytopenia [Fatal]
  - Portal hypertension [Fatal]
  - Coagulopathy [Fatal]
  - Pain [Unknown]
  - Facial pain [Unknown]
  - Product use in unapproved indication [Unknown]
  - Hemiplegia [Unknown]
  - Musculoskeletal stiffness [Unknown]
  - Central pain syndrome [Unknown]
  - Ascites [Fatal]
  - Encephalopathy [Fatal]
  - Vomiting [Unknown]
  - Allodynia [Unknown]

NARRATIVE: CASE EVENT DATE: 200301
